FAERS Safety Report 7255540-7 (Version None)
Quarter: 2011Q1

REPORT INFORMATION
  Report Type: 
  Country: None (occurrence: None)
  Receive Date: 20110129
  Receipt Date: 20100315
  Transmission Date: 20110831
  Serious: No
  Sender: FDA-Public Use
  Company Number: US-ABBOTT-10P-163-0633040-00

PATIENT
  Sex: Female
  Weight: 65.376 kg

DRUGS (4)
  1. TRIMETHAPRINE [Concomitant]
     Indication: URINARY INCONTINENCE
  2. MERCAPTOPURINE [Concomitant]
     Indication: CROHN'S DISEASE
  3. PREDNISONE [Concomitant]
     Indication: PRODUCT USED FOR UNKNOWN INDICATION
  4. HUMIRA [Suspect]
     Indication: CROHN'S DISEASE
     Dosage: 17TH 2 THEN 18TH 2
     Dates: start: 20100217

REACTIONS (1)
  - VULVOVAGINAL MYCOTIC INFECTION [None]
